FAERS Safety Report 8026719-1 (Version None)
Quarter: 2012Q1

REPORT INFORMATION
  Report Type: 
  Country: None (occurrence: None)
  Receive Date: 20120106
  Receipt Date: 20120103
  Transmission Date: 20120608
  Serious: No
  Sender: FDA-Public Use
  Company Number: US-BIOGENIDEC-2012BI000235

PATIENT
  Age: 40 Year
  Sex: Male

DRUGS (2)
  1. TYSABRI [Suspect]
     Indication: MULTIPLE SCLEROSIS
     Route: 042
     Dates: start: 20061004, end: 20110101
  2. TYSABRI [Suspect]
     Route: 042
     Dates: start: 20110101, end: 20111101

REACTIONS (2)
  - MULTIPLE SCLEROSIS [None]
  - HEADACHE [None]
